FAERS Safety Report 12318581 (Version 2)
Quarter: 2016Q2

REPORT INFORMATION
  Report Type: Spontaneous
  Country: US (occurrence: US)
  Receive Date: 20160429
  Receipt Date: 20160601
  Transmission Date: 20160815
  Serious: Yes (Death, Life-Threatening, Hospitalization, Disabling)
  Sender: FDA-Public Use
  Company Number: US-009507513-1604USA017181

PATIENT
  Age: 46 Year
  Sex: Female
  Weight: 73.6 kg

DRUGS (2)
  1. KEYTRUDA [Suspect]
     Active Substance: PEMBROLIZUMAB
     Indication: METASTATIC MALIGNANT MELANOMA
     Dosage: 2 MG/KG, Q3W
     Route: 042
     Dates: start: 20150305, end: 20150305
  2. IPILIMUMAB [Suspect]
     Active Substance: IPILIMUMAB
     Indication: METASTATIC MALIGNANT MELANOMA
     Dosage: 3 MG/KG, Q3W
     Route: 042
     Dates: start: 20141113, end: 20150115

REACTIONS (11)
  - Respiratory failure [Fatal]
  - Abdominal sepsis [Fatal]
  - Large intestine perforation [Fatal]
  - Malignant neoplasm progression [Fatal]
  - Asthenia [Fatal]
  - Aspiration [Fatal]
  - Diarrhoea [Fatal]
  - Abdominal pain [Fatal]
  - Autoimmune colitis [Fatal]
  - Blood lactic acid increased [Fatal]
  - Metastatic malignant melanoma [Fatal]

NARRATIVE: CASE EVENT DATE: 20150327
